FAERS Safety Report 9917106 (Version 1)
Quarter: 2014Q1

REPORT INFORMATION
  Report Type: Spontaneous
  Country: DE (occurrence: DE)
  Receive Date: 20140221
  Receipt Date: 20140221
  Transmission Date: 20141002
  Serious: Yes (Other)
  Sender: FDA-Public Use
  Company Number: DE-UCBSA-112346

PATIENT
  Age: 84 Year
  Sex: Male

DRUGS (3)
  1. LEGANTO [Suspect]
     Indication: RESTLESS LEGS SYNDROME
     Dosage: STRENGTH: 1 MG
     Dates: start: 201306
  2. CLOPIDOGREL [Suspect]
  3. ESPA-LEPSIN [Concomitant]
     Indication: RESTLESS LEGS SYNDROME

REACTIONS (4)
  - Wound haemorrhage [Unknown]
  - Skin irritation [Unknown]
  - Rash maculo-papular [Unknown]
  - Pruritus [Unknown]
